FAERS Safety Report 19965606 (Version 2)
Quarter: 2021Q4

REPORT INFORMATION
  Report Type: Spontaneous
  Country: JP (occurrence: JP)
  Receive Date: 20211018
  Receipt Date: 20211117
  Transmission Date: 20220303
  Serious: Yes (Hospitalization, Other)
  Sender: FDA-Public Use
  Company Number: JP-BAYER-2021A226286

PATIENT
  Age: 84 Year

DRUGS (3)
  1. IOPAMIRON [Suspect]
     Active Substance: IOPAMIDOL
     Indication: Scan with contrast
     Dosage: UNK, SINGLE
     Route: 042
     Dates: start: 20210730, end: 20210730
  2. APO LANSOPRAZOLE ODT [Concomitant]
  3. ERIL [ENALAPRIL MALEATE] [Concomitant]
     Dosage: UNK
     Dates: start: 20210801

REACTIONS (1)
  - Renal impairment [Recovering/Resolving]

NARRATIVE: CASE EVENT DATE: 20210802
